FAERS Safety Report 24202168 (Version 1)
Quarter: 2024Q3

REPORT INFORMATION
  Report Type: Report from Study
  Country: US (occurrence: US)
  Receive Date: 20240812
  Receipt Date: 20240812
  Transmission Date: 20241017
  Serious: Yes (Other)
  Sender: SUNOVION
  Company Number: US-SMPA-2024SPA000565AA

PATIENT

DRUGS (3)
  1. ORGOVYX [Suspect]
     Active Substance: RELUGOLIX
     Indication: Prostate cancer
     Dosage: 360 MG
     Route: 048
     Dates: start: 20240220, end: 20240220
  2. ORGOVYX [Suspect]
     Active Substance: RELUGOLIX
     Dosage: 120 MG, QD
     Route: 048
     Dates: start: 20240221
  3. ERLEADA [Suspect]
     Active Substance: APALUTAMIDE
     Dosage: UNK
     Route: 065

REACTIONS (6)
  - Angina pectoris [Not Recovered/Not Resolved]
  - Arrhythmia [Not Recovered/Not Resolved]
  - Atrioventricular block [Unknown]
  - Chest pain [Unknown]
  - Dyspnoea [Not Recovered/Not Resolved]
  - Myalgia [Not Recovered/Not Resolved]
